FAERS Safety Report 8114641-1 (Version None)
Quarter: 2012Q1

REPORT INFORMATION
  Report Type: 
  Country: None (occurrence: None)
  Receive Date: 20120206
  Receipt Date: 20120127
  Transmission Date: 20120608
  Serious: Yes (Hospitalization, Other)
  Sender: FDA-Public Use
  Company Number: US-PFIZER INC-2012023524

PATIENT
  Sex: Female
  Weight: 49.887 kg

DRUGS (1)
  1. VFEND [Suspect]
     Indication: FUNGAL INFECTION
     Dosage: 200 MG, 2X/DAY
     Route: 048
     Dates: start: 20111208

REACTIONS (3)
  - PAIN IN EXTREMITY [None]
  - LUNG INFECTION [None]
  - PYREXIA [None]
